FAERS Safety Report 9398121 (Version 1)
Quarter: 2013Q3

REPORT INFORMATION
  Report Type: Spontaneous
  Country: US (occurrence: US)
  Receive Date: 20130712
  Receipt Date: 20130712
  Transmission Date: 20140515
  Serious: No
  Sender: FDA-Public Use
  Company Number: US-GLAXOSMITHKLINE-A0986553A

PATIENT
  Age: 72 Year
  Sex: Female

DRUGS (5)
  1. FLOVENT [Suspect]
     Indication: EOSINOPHILIC OESOPHAGITIS
     Dosage: 1PUFF TWICE PER DAY
     Route: 055
     Dates: start: 201202
  2. METFORMIN [Concomitant]
  3. SIMVASTATIN [Concomitant]
  4. LISINOPRIL [Concomitant]
  5. FENOFIBRATE [Concomitant]

REACTIONS (1)
  - Drug ineffective [Unknown]
